FAERS Safety Report 4943564-1 (Version None)
Quarter: 2006Q1

REPORT INFORMATION
  Report Type: 
  Country: None (occurrence: None)
  Receive Date: 20060314
  Receipt Date: 20051011
  Transmission Date: 20060701
  Serious: Yes (Death, Hospitalization)
  Sender: FDA-Public Use
  Company Number: DE-SANOFI-SYNTHELABO-F04200500156

PATIENT
  Sex: Male

DRUGS (12)
  1. ELOXATIN [Suspect]
     Indication: RECTAL CANCER
     Route: 041
     Dates: start: 20050901, end: 20050901
  2. ELOXATIN [Suspect]
     Indication: METASTASES TO LIVER
     Route: 041
     Dates: start: 20050901, end: 20050901
  3. CAPECITABIN [Suspect]
     Indication: RECTAL CANCER
     Dosage: 1850 MG/M2
     Route: 048
     Dates: start: 20050825, end: 20050907
  4. CETUXIMAB [Suspect]
     Indication: RECTAL CANCER
     Route: 041
     Dates: start: 20050908, end: 20050908
  5. RADIOCHEMOTHERAPY [Suspect]
     Indication: RECTAL CANCER
     Dosage: TOTAL REFERENCE DOSE AT 50.40 GY.
     Dates: start: 20050824, end: 20050930
  6. PANTOZOL [Concomitant]
     Indication: DRUG USE FOR UNKNOWN INDICATION
     Route: 048
  7. PROSCAR [Concomitant]
     Indication: DRUG USE FOR UNKNOWN INDICATION
     Route: 048
  8. IBUPROFEN [Concomitant]
     Indication: DRUG USE FOR UNKNOWN INDICATION
     Route: 048
  9. MCP DROPS [Concomitant]
     Indication: DRUG USE FOR UNKNOWN INDICATION
     Route: 048
  10. BELOC ZOK [Concomitant]
     Indication: DRUG USE FOR UNKNOWN INDICATION
     Route: 048
  11. CALCIUM GLUCONATE [Concomitant]
     Indication: DRUG USE FOR UNKNOWN INDICATION
     Dosage: UNK
     Route: 048
  12. ALLOPURINOL [Concomitant]
     Dosage: 300 MG EVERY SECOND DAY
     Route: 048

REACTIONS (5)
  - ANAEMIA [None]
  - C-REACTIVE PROTEIN INCREASED [None]
  - CARDIAC FAILURE [None]
  - DIARRHOEA [None]
  - PYREXIA [None]
